FAERS Safety Report 15986100 (Version 3)
Quarter: 2019Q1

REPORT INFORMATION
  Report Type: Spontaneous
  Country: FR (occurrence: FR)
  Receive Date: 20190220
  Receipt Date: 20190326
  Transmission Date: 20190418
  Serious: Yes (Death)
  Sender: FDA-Public Use
  Company Number: FR-TEVA-2019-FR-1014501

PATIENT
  Sex: Male
  Weight: 82 kg

DRUGS (5)
  1. TAMSULOSINE [Concomitant]
     Active Substance: TAMSULOSIN HYDROCHLORIDE
     Indication: URINARY RETENTION
     Dosage: .4 MILLIGRAM DAILY;
     Route: 048
     Dates: start: 20190203
  2. ZOPICLONE [Concomitant]
     Active Substance: ZOPICLONE
     Dosage: 3.75 MILLIGRAM DAILY;
     Route: 048
     Dates: start: 20190208
  3. PANTOPRAZOLE [Concomitant]
     Active Substance: PANTOPRAZOLE
     Indication: HAEMORRHAGE
     Dosage: 40 MILLIGRAM DAILY;
     Route: 048
     Dates: start: 20190202
  4. PROPRANOLOL TEVA LP 160 MG [Suspect]
     Active Substance: PROPRANOLOL HYDROCHLORIDE
     Indication: VARICES OESOPHAGEAL
     Dosage: EVERY MORNING
     Route: 048
     Dates: start: 20190202
  5. AMOXICILLIN. [Concomitant]
     Active Substance: AMOXICILLIN
     Indication: PRODUCTIVE COUGH

REACTIONS (2)
  - Cardio-respiratory arrest [Fatal]
  - Fatigue [Unknown]

NARRATIVE: CASE EVENT DATE: 2019
